FAERS Safety Report 20073519 (Version 1)
Quarter: 2021Q4

REPORT INFORMATION
  Report Type: Spontaneous
  Country: JP (occurrence: JP)
  Receive Date: 20211116
  Receipt Date: 20211116
  Transmission Date: 20220303
  Serious: Yes (Hospitalization, Other)
  Sender: FDA-Public Use
  Company Number: JP-Eisai Medical Research-EC-2021-102808

PATIENT

DRUGS (6)
  1. ZONISAMIDE [Suspect]
     Active Substance: ZONISAMIDE
     Indication: Dementia with Lewy bodies
     Dosage: 25 MG, QD,  TRERIEF
     Route: 048
  2. STALEVO [Suspect]
     Active Substance: CARBIDOPA\ENTACAPONE\LEVODOPA
     Indication: Product used for unknown indication
     Dosage: 800 MG, QD
  3. ISTRADEFYLLINE [Suspect]
     Active Substance: ISTRADEFYLLINE
     Indication: Product used for unknown indication
     Dosage: DOSE AND FREQUENCY NOT PROVIDED
  4. REBAMIPIDE [Suspect]
     Active Substance: REBAMIPIDE
     Indication: Product used for unknown indication
     Dosage: DOSE AND FREQUENCY NOT PROVIDED
  5. BELSOMRA [Suspect]
     Active Substance: SUVOREXANT
     Indication: Product used for unknown indication
     Dosage: DOSE AND FREQUENCY NOT PROVIDED
  6. HERBALS [Concomitant]
     Active Substance: HERBALS
     Indication: Product used for unknown indication
     Dosage: DOSE AND  FREQUENCY NOT PROVIDED
     Route: 065

REACTIONS (1)
  - Dementia [Not Recovered/Not Resolved]
